FAERS Safety Report 5252318-0 (Version None)
Quarter: 2007Q1

REPORT INFORMATION
  Report Type: 
  Country: None (occurrence: None)
  Receive Date: 20070301
  Receipt Date: 20060328
  Transmission Date: 20070707
  Serious: No
  Sender: FDA-Public Use
  Company Number: US-BRISTOL-MYERS SQUIBB COMPANY-13328406

PATIENT
  Age: 75 Year
  Sex: Male
  Weight: 69 kg

DRUGS (4)
  1. TAXOL [Suspect]
     Indication: NON-SMALL CELL LUNG CANCER
     Route: 042
     Dates: start: 20060324, end: 20060324
  2. ZOFRAN [Concomitant]
     Indication: PREMEDICATION
     Route: 042
  3. ZANTAC [Concomitant]
     Indication: PREMEDICATION
     Route: 042
  4. DECADRON [Concomitant]
     Indication: PREMEDICATION
     Route: 042

REACTIONS (1)
  - EXTRAVASATION [None]
